FAERS Safety Report 7605426-0 (Version None)
Quarter: 2011Q3

REPORT INFORMATION
  Report Type: 
  Country: None (occurrence: None)
  Receive Date: 20110712
  Receipt Date: 20110712
  Transmission Date: 20111222
  Serious: No
  Sender: FDA-Public Use
  Company Number: None

PATIENT
  Age: 64 Year
  Sex: Male
  Weight: 102.6 kg

DRUGS (1)
  1. NORTRIPTYLINE HCL [Suspect]
     Indication: PAIN
     Dosage: 25 MG HS PO
     Route: 048
     Dates: start: 20110610, end: 20110628

REACTIONS (5)
  - MUSCLE SPASMS [None]
  - DYSTONIA [None]
  - EXTRAPYRAMIDAL DISORDER [None]
  - BLEPHAROSPASM [None]
  - MUSCLE TWITCHING [None]
